FAERS Safety Report 22333330 (Version 1)
Quarter: 2023Q2

REPORT INFORMATION
  Report Type: Spontaneous
  Country: DE (occurrence: DE)
  Receive Date: 20230517
  Receipt Date: 20230517
  Transmission Date: 20230722
  Serious: Yes (Congenital Anomaly, Other)
  Sender: FDA-Public Use
  Company Number: DE-EMBRYOTOX-202121548

PATIENT
  Sex: Male
  Weight: 3.03 kg

DRUGS (4)
  1. LEVOTHYROXINE SODIUM [Concomitant]
     Active Substance: LEVOTHYROXINE SODIUM
     Indication: Hypothyroidism
     Dosage: 75 UNK
     Route: 064
     Dates: start: 20211109, end: 20220823
  2. Comirnaty monovalent (BioNTech/Pfizer) [Concomitant]
     Indication: COVID-19 immunisation
     Dosage: 3RD VACCINATION
     Route: 064
     Dates: start: 20211125, end: 20211125
  3. ENOXAPARIN SODIUM [Concomitant]
     Active Substance: ENOXAPARIN SODIUM
     Indication: Coagulopathy
     Dosage: 40 [MG/D ]
     Route: 064
     Dates: start: 20211221, end: 20220823
  4. PROGESTERONE [Suspect]
     Active Substance: PROGESTERONE
     Indication: Uterine haematoma
     Dosage: 200 [MG/D ]
     Route: 064
     Dates: start: 20211221, end: 20220308

REACTIONS (4)
  - Atrial septal defect [Not Recovered/Not Resolved]
  - Foetal exposure during pregnancy [Unknown]
  - Mitral valve incompetence [Not Recovered/Not Resolved]
  - Ventricular septal defect [Not Recovered/Not Resolved]
